FAERS Safety Report 8543623-0 (Version None)
Quarter: 2012Q3

REPORT INFORMATION
  Report Type: 
  Country: None (occurrence: None)
  Receive Date: 20120717
  Receipt Date: 20120706
  Transmission Date: 20120928
  Serious: Yes (Hospitalization)
  Sender: FDA-Public Use
  Company Number: 2009JP007418

PATIENT
  Age: 69 Year
  Sex: Male
  Weight: 60 kg

DRUGS (24)
  1. MAGLAX (MAGNESIUM OXIDE) [Concomitant]
  2. OMEPRAZOLE [Concomitant]
  3. ONEALFA (ALFACALCIDOL) [Concomitant]
  4. LOSARTAN POTASSIUM [Concomitant]
  5. ATELEC (CILNIDIPINE) [Concomitant]
  6. FERROMIA (FERROUS SODIUM CITRATE) [Concomitant]
  7. PREDNISOLONE [Concomitant]
  8. PERSANTIN [Concomitant]
  9. LASIX [Concomitant]
  10. LOXONIN (LOXOPROFEN SODIUM) [Concomitant]
  11. TACROLIMUS [Suspect]
     Indication: LUPUS NEPHRITIS
     Dosage: 3 MG, UNKNOWN/D, ORAL
     Route: 048
     Dates: start: 20091110
  12. ALENDRONATE SODIUM [Concomitant]
  13. ACETAMINOPHEN [Concomitant]
  14. PRORENAL (LIMAPROST) [Concomitant]
  15. SULFAMETHOXAZOLE AND TRIMETHOPRIM [Concomitant]
  16. BREDININ (MIZORIBINE) [Concomitant]
  17. SALAGEN [Concomitant]
  18. CINAL (ASCORBIC ACID, CALCIUM PANTOTHENATE) [Concomitant]
  19. ALENDRONATE SODIUM [Concomitant]
  20. DIOVAN [Concomitant]
  21. MUCOSTA (REBAMIPIDE) [Concomitant]
  22. KOLANTYL (METHYLCELLULOSE) [Concomitant]
  23. KELNAC (PLAUNOTOL) [Concomitant]
  24. VESICARE [Concomitant]

REACTIONS (3)
  - DIZZINESS POSTURAL [None]
  - SPINAL COMPRESSION FRACTURE [None]
  - DECREASED APPETITE [None]
